FAERS Safety Report 18573888 (Version 1)
Quarter: 2020Q4

REPORT INFORMATION
  Report Type: Spontaneous
  Country: US (occurrence: US)
  Receive Date: 20201203
  Receipt Date: 20201203
  Transmission Date: 20210114
  Serious: No
  Sender: FDA-Public Use
  Company Number: US-TEVA-2020-US-1855228

PATIENT
  Age: 75 Year
  Sex: Female

DRUGS (1)
  1. ANAGRELIDE TEVA [Suspect]
     Active Substance: ANAGRELIDE
     Indication: ESSENTIAL THROMBOCYTHAEMIA
     Dosage: TAKING TEVAS ANAGRELIDE FOR 10 YEARS
     Route: 065

REACTIONS (5)
  - Anaemia [Not Recovered/Not Resolved]
  - Renal disorder [Not Recovered/Not Resolved]
  - Gout [Not Recovered/Not Resolved]
  - Product availability issue [Unknown]
  - Glomerular filtration rate decreased [Unknown]

NARRATIVE: CASE EVENT DATE: 202001
